FAERS Safety Report 7569778-2 (Version None)
Quarter: 2011Q2

REPORT INFORMATION
  Report Type: 
  Country: None (occurrence: None)
  Receive Date: 20110624
  Receipt Date: 20110614
  Transmission Date: 20111010
  Serious: Yes (Hospitalization)
  Sender: FDA-Public Use
  Company Number: US-JNJFOC-20110409335

PATIENT
  Sex: Male
  Weight: 70.31 kg

DRUGS (4)
  1. LIPITOR [Concomitant]
     Indication: BLOOD CHOLESTEROL
     Route: 048
  2. STELARA [Suspect]
     Route: 058
     Dates: start: 20110101, end: 20110101
  3. STELARA [Suspect]
     Indication: PSORIASIS
     Route: 058
     Dates: start: 20101025
  4. ASPIRIN [Concomitant]
     Route: 048

REACTIONS (11)
  - NEURALGIA [None]
  - FALL [None]
  - HEADACHE [None]
  - UNEVALUABLE EVENT [None]
  - HAND FRACTURE [None]
  - VISION BLURRED [None]
  - INJECTION SITE PAIN [None]
  - GAIT DISTURBANCE [None]
  - BALANCE DISORDER [None]
  - SENSORY DISTURBANCE [None]
  - PAIN [None]
